FAERS Safety Report 20976474 (Version 3)
Quarter: 2023Q1

REPORT INFORMATION
  Report Type: Spontaneous
  Country: US (occurrence: US)
  Receive Date: 20220617
  Receipt Date: 20230310
  Transmission Date: 20230418
  Serious: Yes (Other)
  Sender: FDA-Public Use
  Company Number: US-TAKEDA-2022TUS039660

PATIENT
  Sex: Female

DRUGS (4)
  1. VYVANSE [Suspect]
     Active Substance: LISDEXAMFETAMINE DIMESYLATE
     Indication: Narcolepsy
     Dosage: 20 MILLIGRAM, QD
     Route: 065
  2. ADDERALL XR [Suspect]
     Active Substance: AMPHETAMINE ASPARTATE\AMPHETAMINE SULFATE\DEXTROAMPHETAMINE SACCHARATE\DEXTROAMPHETAMINE SULFATE
     Indication: Product used for unknown indication
     Route: 065
  3. XYREM [Concomitant]
     Active Substance: SODIUM OXYBATE
     Dosage: UNK
  4. RITALIN [Concomitant]
     Active Substance: METHYLPHENIDATE HYDROCHLORIDE
     Dosage: 10 MILLIGRAM
     Route: 065

REACTIONS (7)
  - Drug dependence [Unknown]
  - Depressed mood [Unknown]
  - Product use issue [Unknown]
  - Drug ineffective [Unknown]
  - Product dose omission issue [Unknown]
  - Product availability issue [Unknown]
  - Off label use [Unknown]
